FAERS Safety Report 12650656 (Version 3)
Quarter: 2016Q4

REPORT INFORMATION
  Report Type: Report from Study
  Country: US (occurrence: US)
  Receive Date: 20160815
  Receipt Date: 20161031
  Transmission Date: 20170207
  Serious: Yes (Other)
  Sender: FDA-Public Use
  Company Number: US-009507513-1608USA006721

PATIENT
  Age: 63 Year
  Sex: Male

DRUGS (2)
  1. TAXOL [Concomitant]
     Active Substance: PACLITAXEL
  2. KEYTRUDA [Suspect]
     Active Substance: PEMBROLIZUMAB
     Indication: OESOPHAGEAL CARCINOMA
     Dosage: 117 MG, ONCE EVERY 3 WEEKS
     Route: 042
     Dates: start: 20160630, end: 20160726

REACTIONS (3)
  - Product use issue [Unknown]
  - Malignant neoplasm progression [Unknown]
  - Drug hypersensitivity [Unknown]

NARRATIVE: CASE EVENT DATE: 20160630
